FAERS Safety Report 7861364-X (Version None)
Quarter: 2011Q4

REPORT INFORMATION
  Report Type: 
  Country: None (occurrence: None)
  Receive Date: 20111027
  Receipt Date: 20111021
  Transmission Date: 20120403
  Serious: Yes (Other)
  Sender: FDA-Public Use
  Company Number: BR-PFIZER INC-2010177552

PATIENT
  Age: 27 Year
  Sex: Female
  Weight: 80 kg

DRUGS (4)
  1. ASPIRIN [Concomitant]
     Dosage: UNK
  2. ATENOLOL [Concomitant]
     Indication: HYPERTENSION
     Dosage: 25 MG
     Dates: start: 20100401, end: 20110201
  3. NORDETTE-21 [Suspect]
     Dosage: [LEVONORGESTREL 0.15MG / ETHINYLESTRADIOL 0.03MG], (ONE TABLET) ONCE DAILY
     Dates: start: 20090101
  4. NORDETTE-21 [Suspect]
     Indication: CONTRACEPTION
     Dosage: [LEVONORGESTREL 0.15MG / ETHINYLESTRADIOL 0.03MG],  ONCE DAILY
     Route: 048
     Dates: start: 20050101

REACTIONS (13)
  - GESTATIONAL HYPERTENSION [None]
  - DRUG ADMINISTRATION ERROR [None]
  - HYPERTENSION [None]
  - UNINTENDED PREGNANCY [None]
  - MENOMETRORRHAGIA [None]
  - MENSTRUATION DELAYED [None]
  - IRRITABILITY [None]
  - THROMBOSIS [None]
  - SWELLING [None]
  - CHILLS [None]
  - ERYTHEMA [None]
  - PRURITUS [None]
  - POOR QUALITY DRUG ADMINISTERED [None]
